FAERS Safety Report 24412844 (Version 1)
Quarter: 2024Q4

REPORT INFORMATION
  Report Type: Spontaneous
  Country: US (occurrence: None)
  Receive Date: 20241008
  Receipt Date: 20241008
  Transmission Date: 20250114
  Serious: No
  Sender: Public
  Company Number: None

PATIENT
  Age: 57 Year
  Sex: Female

DRUGS (18)
  1. MYCOPHENOLIC ACID [Suspect]
     Active Substance: MYCOPHENOLIC ACID
  2. LOKELMA [Suspect]
     Active Substance: SODIUM ZIRCONIUM CYCLOSILICATE
  3. TACROLIMUS [Suspect]
     Active Substance: TACROLIMUS
  4. PREDNISONE [Suspect]
     Active Substance: PREDNISONE
  5. OMEPRAZOLE [Suspect]
     Active Substance: OMEPRAZOLE
  6. SODIUM BICARBONATE [Suspect]
     Active Substance: SODIUM BICARBONATE
  7. VITAMIN D2 [Suspect]
     Active Substance: ERGOCALCIFEROL
  8. CARVEDILOL [Suspect]
     Active Substance: CARVEDILOL
  9. ATORVASTATIN [Suspect]
     Active Substance: ATORVASTATIN
  10. FUROSEMIDE [Concomitant]
     Active Substance: FUROSEMIDE
  11. CRANBERRY [Concomitant]
     Active Substance: CRANBERRY
  12. GLUCAGON [Concomitant]
     Active Substance: GLUCAGON
  13. MUCINEX [Concomitant]
     Active Substance: GUAIFENESIN
  14. MULTIVITAMIN ADULTS [Concomitant]
  15. CALCIUM [Concomitant]
     Active Substance: CALCIUM
  16. HUMALOG CARTRIDGE [Concomitant]
     Active Substance: INSULIN LISPRO
  17. LISINOPRIL [Concomitant]
     Active Substance: LISINOPRIL
  18. ASPIRIN [Concomitant]
     Active Substance: ASPIRIN

REACTIONS (1)
  - Death [None]

NARRATIVE: CASE EVENT DATE: 20240910
